FAERS Safety Report 7764351-5 (Version None)
Quarter: 2011Q3

REPORT INFORMATION
  Report Type: 
  Country: None (occurrence: None)
  Receive Date: 20110921
  Receipt Date: 20110908
  Transmission Date: 20111222
  Serious: Yes (Hospitalization)
  Sender: FDA-Public Use
  Company Number: JP-SANOFI-AVENTIS-2011SA056493

PATIENT
  Age: 78 Year
  Sex: Male
  Weight: 47 kg

DRUGS (35)
  1. IMIDAPRIL HYDROCHLORIDE [Concomitant]
     Indication: HYPERTENSION
     Route: 048
     Dates: start: 20110531, end: 20110819
  2. ANTITHROMBIN III [Concomitant]
     Dosage: DOSE:1500 UNIT(S)
     Route: 042
     Dates: start: 20110822
  3. GIMERACIL/OTERACIL POTASSIUM/TEGAFUR [Suspect]
     Indication: GASTRIC CANCER RECURRENT
     Route: 048
     Dates: start: 20110607, end: 20110718
  4. VANCOMYCIN HYCHLORIDE [Concomitant]
     Dosage: DOSE: 1000-750 MG
     Route: 042
     Dates: start: 20110821, end: 20110823
  5. AMLODIPINE BESYLATE [Concomitant]
     Indication: HYPERTENSION
     Route: 048
     Dates: start: 20110531, end: 20110819
  6. ETHYL ICOSAPENTATE [Concomitant]
     Indication: HYPERLIPIDAEMIA
     Route: 048
     Dates: start: 20110531
  7. AMPICILLIN SODIUM/SULBACTAM SODIUM [Concomitant]
     Dosage: VIALS
     Route: 042
     Dates: start: 20110824
  8. CLINDAMYCIN [Concomitant]
     Dosage: DOSE:125 MILLIGRAM(S)/MILLILITRE
     Route: 042
     Dates: start: 20110825
  9. SODIUM BENZOATE AND SULFAMETHOXAZOLE AND TRIMETHOPRIM AND GUAIFENESIN [Concomitant]
     Indication: CONJUNCTIVITIS
     Dates: start: 20110811
  10. FUROSEMIDE [Concomitant]
     Indication: OEDEMA
     Dosage: DOSE: 20-40 MG
     Route: 048
     Dates: start: 20110819
  11. DOPAMINE HCL [Concomitant]
     Indication: BLOOD PRESSURE DECREASED
     Route: 042
     Dates: start: 20110821, end: 20110821
  12. BLOOD AND RELATED PRODUCTS [Concomitant]
     Indication: PLATELET COUNT DECREASED
     Dosage: 10-20-10 PACKS
     Route: 042
     Dates: start: 20110822, end: 20110826
  13. OXALIPLATIN [Suspect]
     Indication: GASTRIC CANCER RECURRENT
     Route: 041
     Dates: start: 20110607, end: 20110704
  14. ASPIRIN [Concomitant]
     Indication: ANGINA PECTORIS
     Route: 048
     Dates: start: 20110531
  15. LANSOPRAZOLE [Concomitant]
     Indication: GASTRITIS PROPHYLAXIS
     Route: 048
     Dates: start: 20110820
  16. ALBUMIN (HUMAN) [Concomitant]
     Indication: BLOOD ALBUMIN DECREASED
     Route: 042
     Dates: start: 20110820
  17. RED BLOOD CELLS, LEUCOCYTE DEPLETED [Concomitant]
     Dates: start: 20110826
  18. ISOSORBIDE DINITRATE [Concomitant]
     Indication: ANGINA PECTORIS
     Dates: start: 20110531
  19. GLUCONSAN K [Concomitant]
     Indication: BLOOD POTASSIUM DECREASED
     Route: 048
     Dates: start: 20110816
  20. MILTAX [Concomitant]
     Indication: PAIN
     Dates: start: 20110820
  21. INTRALIPID 10% [Concomitant]
     Indication: NUTRITIONAL SUPPORT
     Route: 042
     Dates: start: 20110820, end: 20110821
  22. POTASSIUM CHLORIDE [Concomitant]
     Indication: FLUID REPLACEMENT
     Dosage: DOSE: 500-1500 ML
     Route: 042
     Dates: start: 20110816
  23. OXALIPLATIN [Suspect]
     Route: 041
     Dates: start: 20110725, end: 20110725
  24. TAMSULOSIN HCL [Concomitant]
     Indication: BENIGN PROSTATIC HYPERPLASIA
     Route: 048
     Dates: start: 20110531
  25. GIMERACIL/OTERACIL POTASSIUM/TEGAFUR [Suspect]
     Route: 048
     Dates: start: 20110725, end: 20110804
  26. ALFAROL [Concomitant]
     Indication: OSTEOPOROSIS PROPHYLAXIS
     Route: 048
     Dates: start: 20110531
  27. MIGLITOL [Concomitant]
     Indication: DIABETES MELLITUS
     Route: 048
     Dates: start: 20110531
  28. LOXOPROFEN [Concomitant]
     Indication: PAIN
     Route: 048
     Dates: start: 20110820
  29. ATORVASTATIN CALCIUM [Concomitant]
     Indication: HYPERLIPIDAEMIA
     Route: 048
     Dates: start: 20110531
  30. CLOSTRIDIUM BUTYRICUM [Concomitant]
     Indication: ABDOMINAL DISCOMFORT
     Route: 048
     Dates: start: 20110531
  31. RISEDRONATE SODIUM [Concomitant]
     Indication: OSTEOPOROSIS PROPHYLAXIS
     Route: 048
     Dates: start: 20110531
  32. SPIRONOLACTONE [Concomitant]
     Indication: OEDEMA
     Route: 048
     Dates: start: 20110816
  33. AZULENE [Concomitant]
     Indication: SKIN DISORDER
     Dates: start: 20110818
  34. VENOGLOBULIN [Concomitant]
     Route: 042
     Dates: start: 20110825
  35. ALL OTHER THERAPEUTIC PRODUCTS [Concomitant]
     Dosage: DOSE:12800 UNIT(S)
     Route: 041
     Dates: start: 20110826

REACTIONS (3)
  - DISSEMINATED INTRAVASCULAR COAGULATION [None]
  - PSOAS ABSCESS [None]
  - DEVICE RELATED INFECTION [None]
